FAERS Safety Report 8097589-0 (Version None)
Quarter: 2012Q1

REPORT INFORMATION
  Report Type: 
  Country: None (occurrence: None)
  Receive Date: 20120128
  Receipt Date: 20110620
  Transmission Date: 20120608
  Serious: No
  Sender: FDA-Public Use
  Company Number: US-ABBOTT-11P-163-0734031-00

PATIENT
  Age: 38 Year
  Sex: Male

DRUGS (8)
  1. FOLIC ACID [Concomitant]
     Indication: CROHN'S DISEASE
  2. HUMIRA [Suspect]
  3. AMITRIPTYLINE HCL [Concomitant]
     Indication: ABDOMINAL PAIN
  4. VITAMIN B-12 [Concomitant]
     Indication: SUPPLEMENTATION THERAPY
  5. HUMIRA [Suspect]
     Indication: CROHN'S DISEASE
     Dosage: LOADING DOSE
     Dates: start: 20110610, end: 20110610
  6. PENTASA [Concomitant]
     Indication: CROHN'S DISEASE
  7. AZATHIOPRINE [Concomitant]
     Indication: CROHN'S DISEASE
  8. ENTOCORT EC [Concomitant]
     Indication: CROHN'S DISEASE
     Dosage: IN THE MORNING

REACTIONS (2)
  - RASH MACULO-PAPULAR [None]
  - RASH ERYTHEMATOUS [None]
